FAERS Safety Report 16783577 (Version 7)
Quarter: 2020Q4

REPORT INFORMATION
  Report Type: Report from Study
  Country: CA (occurrence: CA)
  Receive Date: 20190907
  Receipt Date: 20201201
  Transmission Date: 20210113
  Serious: Yes (Other)
  Sender: FDA-Public Use
  Company Number: CA-AMGEN-CANNI2019145927

PATIENT
  Age: 46 Year
  Sex: Female

DRUGS (4)
  1. AIMOVIG [Suspect]
     Active Substance: ERENUMAB-AOOE
     Dosage: UNK, QMO
     Route: 058
     Dates: start: 20190216
  2. AIMOVIG [Suspect]
     Active Substance: ERENUMAB-AOOE
     Indication: MIGRAINE
     Dosage: 140 MILLIGRAM, QMO
     Route: 058
     Dates: start: 20190202
  3. BUTORPHANOL [Concomitant]
     Active Substance: BUTORPHANOL
     Indication: PRODUCT USED FOR UNKNOWN INDICATION
     Dosage: UNK
     Route: 065
  4. AIMOVIG [Suspect]
     Active Substance: ERENUMAB-AOOE
     Dosage: 140 MILLIGRAM, QMO
     Route: 030
     Dates: start: 20190301

REACTIONS (7)
  - Skin swelling [Not Recovered/Not Resolved]
  - Therapeutic product effect decreased [Unknown]
  - Migraine [Unknown]
  - Skin infection [Not Recovered/Not Resolved]
  - Incorrect route of product administration [Unknown]
  - Inappropriate schedule of product administration [Unknown]
  - Skin disorder [Not Recovered/Not Resolved]

NARRATIVE: CASE EVENT DATE: 20190314
